FAERS Safety Report 12699996 (Version 6)
Quarter: 2017Q2

REPORT INFORMATION
  Report Type: Spontaneous
  Country: IL (occurrence: IL)
  Receive Date: 20160830
  Receipt Date: 20170512
  Transmission Date: 20170830
  Serious: Yes (Other)
  Sender: FDA-Public Use
  Company Number: IL-PFIZER INC-2016330224

PATIENT
  Age: 36 Year
  Sex: Female

DRUGS (2)
  1. ELELYSO [Suspect]
     Active Substance: TALIGLUCERASE ALFA
     Indication: GAUCHER^S DISEASE
     Dosage: 1800 IU, 2XMONTH, TOTAL OF 3600 IU MONTHLY
     Route: 042
  2. L THYROXIN [Concomitant]
     Active Substance: LEVOTHYROXINE SODIUM
     Dosage: UNK

REACTIONS (8)
  - Asthenia [Unknown]
  - Hypercoagulation [Unknown]
  - Autoimmune disorder [Unknown]
  - Abdominal pain [Unknown]
  - Ear pain [Unknown]
  - Systemic lupus erythematosus [Unknown]
  - Coagulation test abnormal [Unknown]
  - Sinusitis [Unknown]

NARRATIVE: CASE EVENT DATE: 2016
